FAERS Safety Report 10506796 (Version 1)
Quarter: 2014Q4

REPORT INFORMATION
  Report Type: Spontaneous
  Country: US (occurrence: None)
  Receive Date: 20141007
  Receipt Date: 20141007
  Transmission Date: 20150528
  Serious: Yes (Other)
  Sender: FDA-Public Use
  Company Number: 2014VER00210

PATIENT
  Age: 20 Year
  Sex: Male
  Weight: 77.1 kg

DRUGS (4)
  1. MYORISAN [Suspect]
     Active Substance: ISOTRETINOIN
     Indication: ACNE
     Dosage: 1X/DAY
     Route: 048
     Dates: start: 20140626, end: 20140828
  2. MOMETASONE 0.1% TOPICAL OINTMENT [Concomitant]
  3. KETOCONAZOLE SHAMPOO [Concomitant]
  4. DIPROLENE LOTION [Concomitant]

REACTIONS (1)
  - Joint injury [None]
